FAERS Safety Report 7241411-9 (Version None)
Quarter: 2011Q1

REPORT INFORMATION
  Report Type: 
  Country: None (occurrence: None)
  Receive Date: 20110124
  Receipt Date: 20110114
  Transmission Date: 20110831
  Serious: Yes (Other)
  Sender: FDA-Public Use
  Company Number: US-ROCHE-753808

PATIENT
  Sex: Male

DRUGS (1)
  1. TAMIFLU [Suspect]
     Indication: INFLUENZA
     Dosage: DOSE:1 TEASPOON TWICE DAILY;STRENGTH:12 MG/ML
     Route: 048
     Dates: start: 20110111, end: 20110114

REACTIONS (2)
  - HEADACHE [None]
  - CONFUSIONAL STATE [None]
